FAERS Safety Report 10032024 (Version 1)
Quarter: 2014Q1

REPORT INFORMATION
  Report Type: Spontaneous
  Country: US (occurrence: US)
  Receive Date: 20140324
  Receipt Date: 20140324
  Transmission Date: 20141002
  Serious: Yes (Death)
  Sender: FDA-Public Use
  Company Number: US-BAYER-2014-043465

PATIENT
  Sex: Female

DRUGS (2)
  1. YAZ [Suspect]
     Dosage: UNK
     Dates: start: 2005
  2. YASMIN [Suspect]
     Dosage: UNK
     Dates: start: 2005

REACTIONS (5)
  - Pulmonary embolism [Fatal]
  - Anxiety [None]
  - Injury [Fatal]
  - Pain [None]
  - Pain [Fatal]
